FAERS Safety Report 23138857 (Version 1)
Quarter: 2023Q4

REPORT INFORMATION
  Report Type: Spontaneous
  Country: US (occurrence: US)
  Receive Date: 20231102
  Receipt Date: 20231102
  Transmission Date: 20240109
  Serious: No
  Sender: FDA-Public Use
  Company Number: US-GSKCCFUS-Case-01847212_AE-103188

PATIENT
  Age: 48 Year
  Sex: Female

DRUGS (1)
  1. BENLYSTA [Suspect]
     Active Substance: BELIMUMAB
     Indication: Product used for unknown indication
     Dosage: UNK UNK, WE
     Dates: start: 20230701

REACTIONS (6)
  - Arthralgia [Recovered/Resolved]
  - Fatigue [Recovered/Resolved]
  - Skin burning sensation [Recovered/Resolved]
  - Brain fog [Recovered/Resolved]
  - Crying [Recovered/Resolved]
  - Myalgia [Recovered/Resolved]

NARRATIVE: CASE EVENT DATE: 20230701
